FAERS Safety Report 21387174 (Version 3)
Quarter: 2023Q1

REPORT INFORMATION
  Report Type: Report from Study
  Country: NL (occurrence: NL)
  Receive Date: 20220928
  Receipt Date: 20230203
  Transmission Date: 20230418
  Serious: Yes (Other)
  Sender: FDA-Public Use
  Company Number: NL-JNJFOC-20220817732

PATIENT
  Age: 8 Decade
  Sex: Female
  Weight: 87 kg

DRUGS (29)
  1. TADALAFIL [Suspect]
     Active Substance: TADALAFIL
     Indication: Pulmonary hypertension
     Dosage: 10 MILLIGRAM
     Route: 048
     Dates: start: 20210830, end: 20210901
  2. TADALAFIL [Suspect]
     Active Substance: TADALAFIL
     Dosage: 5 MILLIGRAM
     Route: 048
     Dates: start: 20211110, end: 20211208
  3. SILDENAFIL [Suspect]
     Active Substance: SILDENAFIL
     Indication: Pulmonary hypertension
     Dosage: 60 MILLIGRAM
     Route: 048
     Dates: start: 20210817, end: 20210818
  4. LOSARTAN [Suspect]
     Active Substance: LOSARTAN
     Indication: Hypertension
     Dosage: UNK
     Route: 048
     Dates: end: 20221128
  5. MACITENTAN [Suspect]
     Active Substance: MACITENTAN
     Indication: Pulmonary hypertension
     Dosage: 10 MILLIGRAM, QD
     Route: 048
     Dates: start: 20210808
  6. RIOCIGUAT [Suspect]
     Active Substance: RIOCIGUAT
     Indication: Pulmonary hypertension
     Dosage: 6.5 MILLIGRAM
     Route: 048
     Dates: start: 20220215, end: 20220221
  7. RIOCIGUAT [Suspect]
     Active Substance: RIOCIGUAT
     Dosage: 3 MILLIGRAM
     Route: 048
     Dates: start: 20211207, end: 20211213
  8. RIOCIGUAT [Suspect]
     Active Substance: RIOCIGUAT
     Dosage: 6 MILLIGRAM
     Route: 048
     Dates: start: 20220209, end: 20220215
  9. RIOCIGUAT [Suspect]
     Active Substance: RIOCIGUAT
     Dosage: 1 MILLIGRAM
     Route: 048
     Dates: start: 20211003, end: 20211007
  10. RIOCIGUAT [Suspect]
     Active Substance: RIOCIGUAT
     Dosage: 7 MILLIGRAM
     Route: 048
     Dates: start: 20220221, end: 20220315
  11. RIOCIGUAT [Suspect]
     Active Substance: RIOCIGUAT
     Dosage: 0.5 MILLIGRAM
     Route: 048
     Dates: start: 20211116, end: 20211123
  12. RIOCIGUAT [Suspect]
     Active Substance: RIOCIGUAT
     Dosage: 6.5 MILLIGRAM
     Route: 048
     Dates: start: 20220207, end: 20220209
  13. RIOCIGUAT [Suspect]
     Active Substance: RIOCIGUAT
     Dosage: 3.5 MILLIGRAM
     Route: 048
     Dates: start: 20211213, end: 20211219
  14. RIOCIGUAT [Suspect]
     Active Substance: RIOCIGUAT
     Dosage: 2 MILLIGRAM
     Route: 048
     Dates: start: 20211129, end: 20211207
  15. RIOCIGUAT [Suspect]
     Active Substance: RIOCIGUAT
     Dosage: 0.5 MILLIGRAM
     Route: 048
     Dates: start: 20211013, end: 20211101
  16. RIOCIGUAT [Suspect]
     Active Substance: RIOCIGUAT
     Dosage: 7.5 MILLIGRAM
     Route: 048
     Dates: start: 20220206, end: 20220207
  17. RIOCIGUAT [Suspect]
     Active Substance: RIOCIGUAT
     Dosage: 2 MILLIGRAM
     Route: 048
     Dates: start: 20211007, end: 20211008
  18. RIOCIGUAT [Suspect]
     Active Substance: RIOCIGUAT
     Dosage: 4.5 MILLIGRAM
     Route: 048
     Dates: start: 20211219, end: 20220110
  19. RIOCIGUAT [Suspect]
     Active Substance: RIOCIGUAT
     Dosage: 6 MILLIGRAM
     Route: 048
     Dates: start: 20220110, end: 20220206
  20. RIOCIGUAT [Suspect]
     Active Substance: RIOCIGUAT
     Dosage: 1 MILLIGRAM
     Route: 048
     Dates: start: 20211123, end: 20211129
  21. RIOCIGUAT [Suspect]
     Active Substance: RIOCIGUAT
     Dosage: 7.5 MILLIGRAM
     Route: 048
     Dates: start: 20220315
  22. LANSOPRAZOLE [Concomitant]
     Active Substance: LANSOPRAZOLE
     Dosage: UNK
     Route: 048
  23. OXAZEPAM [Concomitant]
     Active Substance: OXAZEPAM
     Dosage: UNK
     Route: 048
     Dates: start: 20210928
  24. HYDROQUININE [Concomitant]
     Dosage: UNK
     Route: 048
  25. TEMAZEPAM [Concomitant]
     Active Substance: TEMAZEPAM
     Indication: Insomnia
     Dosage: UNK
     Route: 048
     Dates: start: 20220105
  26. ASPIRIN [Concomitant]
     Active Substance: ASPIRIN
     Indication: Angina pectoris
     Dosage: UNK
     Route: 048
  27. NITROGLYCERIN [Concomitant]
     Active Substance: NITROGLYCERIN
     Indication: Angina pectoris
     Dosage: UNK
     Route: 065
  28. SPIRONOLACTONE [Concomitant]
     Active Substance: SPIRONOLACTONE
     Indication: Pulmonary hypertension
     Dosage: UNK
     Route: 048
  29. BUMETANIDE [Concomitant]
     Active Substance: BUMETANIDE
     Indication: Pulmonary hypertension
     Dosage: UNK
     Route: 048
     Dates: start: 20201125

REACTIONS (17)
  - Renal impairment [Recovered/Resolved]
  - Pharyngeal disorder [Unknown]
  - Dyspnoea [Unknown]
  - Nasal congestion [Unknown]
  - Hypersensitivity [Unknown]
  - Paraesthesia [Unknown]
  - Fatigue [Unknown]
  - Choking sensation [Unknown]
  - Diplopia [Unknown]
  - Heart rate increased [Unknown]
  - Headache [Unknown]
  - Pain in extremity [Unknown]
  - Burning sensation [Unknown]
  - Inflammation [Unknown]
  - Disturbance in sexual arousal [Unknown]
  - Abdominal pain upper [Unknown]
  - Dizziness postural [Recovered/Resolved]

NARRATIVE: CASE EVENT DATE: 20220101
